FAERS Safety Report 12877197 (Version 1)
Quarter: 2016Q4

REPORT INFORMATION
  Report Type: Spontaneous
  Country: US (occurrence: US)
  Receive Date: 20161023
  Receipt Date: 20161023
  Transmission Date: 20170207
  Serious: Yes (Disabling, Other)
  Sender: FDA-Public Use
  Company Number: None

PATIENT
  Age: 44 Year
  Sex: Female
  Weight: 56.25 kg

DRUGS (10)
  1. CLONAPHIN [Concomitant]
  2. VITAMIN C [Concomitant]
     Active Substance: ASCORBIC ACID
  3. MULTIVITAMIN [Concomitant]
     Active Substance: VITAMINS
  4. TRAMADOL. [Concomitant]
     Active Substance: TRAMADOL
  5. PROBIOTIC [Concomitant]
     Active Substance: PROBIOTICS NOS
  6. LEVOFLOXACIN. [Suspect]
     Active Substance: LEVOFLOXACIN
     Indication: ATYPICAL PNEUMONIA
     Dosage: ?          QUANTITY:7 TABLET(S);?
     Route: 048
     Dates: start: 20161005, end: 20161009
  7. METHOCARBOMAL [Concomitant]
     Active Substance: METHOCARBAMOL
  8. FIORCET [Concomitant]
  9. FIBER [Concomitant]
     Active Substance: PSYLLIUM HUSK
  10. AMBIEN [Concomitant]
     Active Substance: ZOLPIDEM TARTRATE

REACTIONS (11)
  - Pain in jaw [None]
  - Tendon discomfort [None]
  - Middle insomnia [None]
  - Insomnia [None]
  - Sleep disorder [None]
  - Panic attack [None]
  - Feeling of body temperature change [None]
  - Dyspnoea [None]
  - Headache [None]
  - Fatigue [None]
  - Arthralgia [None]

NARRATIVE: CASE EVENT DATE: 20161005
